FAERS Safety Report 6434438-8 (Version None)
Quarter: 2009Q4

REPORT INFORMATION
  Report Type: 
  Country: None (occurrence: None)
  Receive Date: 20091110
  Receipt Date: 20091029
  Transmission Date: 20100525
  Serious: Yes (Hospitalization, Other)
  Sender: FDA-Public Use
  Company Number: DE-PFIZER INC-2009266542

PATIENT
  Age: 63 Year
  Sex: Male
  Weight: 186 kg

DRUGS (1)
  1. SUTENT [Suspect]
     Indication: METASTATIC RENAL CELL CARCINOMA
     Dosage: 50 MG, 1X/DAY
     Route: 048
     Dates: start: 20090816, end: 20090926

REACTIONS (3)
  - FAECAL INCONTINENCE [None]
  - PARAPLEGIA [None]
  - URINARY INCONTINENCE [None]
